FAERS Safety Report 14377277 (Version 1)
Quarter: 2018Q1

REPORT INFORMATION
  Report Type: Spontaneous
  Country: US (occurrence: US)
  Receive Date: 20180111
  Receipt Date: 20180111
  Transmission Date: 20180509
  Serious: No
  Sender: FDA-Public Use
  Company Number: US-DRREDDYS-USA/USA/17/0090746

PATIENT
  Age: 65 Year
  Sex: Female

DRUGS (4)
  1. NICOTINE. [Suspect]
     Active Substance: NICOTINE
     Indication: SMOKING CESSATION THERAPY
     Route: 065
     Dates: start: 20170220
  2. NICODERM CQ [Suspect]
     Active Substance: NICOTINE
     Route: 061
     Dates: start: 20170512
  3. NICODERM CQ [Suspect]
     Active Substance: NICOTINE
     Indication: SMOKING CESSATION THERAPY
     Route: 061
  4. NICOTINE. [Suspect]
     Active Substance: NICOTINE
     Route: 061
     Dates: end: 20170508

REACTIONS (7)
  - Incorrect drug administration duration [Unknown]
  - Overdose [Unknown]
  - Treatment noncompliance [Unknown]
  - Product quality issue [Unknown]
  - Application site erythema [Recovered/Resolved]
  - Application site swelling [Recovered/Resolved]
  - Nicotine dependence [Unknown]

NARRATIVE: CASE EVENT DATE: 20170508
